FAERS Safety Report 23541801 (Version 1)
Quarter: 2024Q1

REPORT INFORMATION
  Report Type: Spontaneous
  Country: CN (occurrence: CN)
  Receive Date: 20240220
  Receipt Date: 20240220
  Transmission Date: 20240410
  Serious: Yes (Life-Threatening, Other)
  Sender: FDA-Public Use
  Company Number: CN-MLMSERVICE-20240209-4823320-1

PATIENT
  Age: 56 Year
  Sex: Female

DRUGS (36)
  1. PACLITAXEL [Suspect]
     Active Substance: PACLITAXEL
     Indication: Metastases to bone
     Dosage: 20 MG/ M2 ON DAYS 1 AND 8, Q4WKS, PTX WAS DILUTED IN 1000 ML SALINE AND MINISTERED INTRAPERITONEALLY
     Route: 033
     Dates: start: 20210329, end: 20210615
  2. PACLITAXEL [Suspect]
     Active Substance: PACLITAXEL
     Indication: Metastases to rectum
     Dosage: IVGTT, 50 MG/M2 ON DAYS 1 AND 8 Q4WKS, PTX WAS INFUSED INTRAVENOUSLY AT THE SAME TIME
     Route: 042
     Dates: start: 20210329, end: 20210615
  3. PACLITAXEL [Suspect]
     Active Substance: PACLITAXEL
     Indication: Gastric cancer stage IV
  4. PACLITAXEL [Suspect]
     Active Substance: PACLITAXEL
     Indication: Metastases to bladder
  5. PACLITAXEL [Suspect]
     Active Substance: PACLITAXEL
     Indication: Metastases to spine
  6. PACLITAXEL [Suspect]
     Active Substance: PACLITAXEL
     Indication: Metastases to peritoneum
  7. GIMERACIL\OTERACIL\TEGAFUR [Suspect]
     Active Substance: GIMERACIL\OTERACIL POTASSIUM\TEGAFUR
     Indication: Metastases to spine
     Dosage: PO, 40 MG, FOR 14 DAYS, Q3WKS;
     Route: 048
     Dates: start: 20210329, end: 20210615
  8. GIMERACIL\OTERACIL\TEGAFUR [Suspect]
     Active Substance: GIMERACIL\OTERACIL POTASSIUM\TEGAFUR
     Indication: Metastases to bladder
  9. GIMERACIL\OTERACIL\TEGAFUR [Suspect]
     Active Substance: GIMERACIL\OTERACIL POTASSIUM\TEGAFUR
     Indication: Gastric cancer stage IV
  10. GIMERACIL\OTERACIL\TEGAFUR [Suspect]
     Active Substance: GIMERACIL\OTERACIL POTASSIUM\TEGAFUR
     Indication: Metastases to bone
  11. GIMERACIL\OTERACIL\TEGAFUR [Suspect]
     Active Substance: GIMERACIL\OTERACIL POTASSIUM\TEGAFUR
     Indication: Metastases to rectum
  12. GIMERACIL\OTERACIL\TEGAFUR [Suspect]
     Active Substance: GIMERACIL\OTERACIL POTASSIUM\TEGAFUR
     Indication: Metastases to peritoneum
  13. CAMRELIZUMAB [Suspect]
     Active Substance: CAMRELIZUMAB
     Indication: Metastases to peritoneum
     Dates: start: 20210315, end: 20210615
  14. CAMRELIZUMAB [Suspect]
     Active Substance: CAMRELIZUMAB
     Indication: Metastases to rectum
  15. CAMRELIZUMAB [Suspect]
     Active Substance: CAMRELIZUMAB
     Indication: Metastases to bladder
  16. CAMRELIZUMAB [Suspect]
     Active Substance: CAMRELIZUMAB
     Indication: Metastases to spine
  17. CAMRELIZUMAB [Suspect]
     Active Substance: CAMRELIZUMAB
     Indication: Gastric cancer stage IV
  18. CAMRELIZUMAB [Suspect]
     Active Substance: CAMRELIZUMAB
     Indication: Metastases to bone
  19. OXALIPLATIN [Suspect]
     Active Substance: OXALIPLATIN
     Indication: Metastases to bone
     Dates: start: 20210318, end: 20210615
  20. OXALIPLATIN [Suspect]
     Active Substance: OXALIPLATIN
     Indication: Metastases to bladder
  21. OXALIPLATIN [Suspect]
     Active Substance: OXALIPLATIN
     Indication: Gastric cancer stage IV
  22. OXALIPLATIN [Suspect]
     Active Substance: OXALIPLATIN
     Indication: Metastases to spine
  23. OXALIPLATIN [Suspect]
     Active Substance: OXALIPLATIN
     Indication: Metastases to peritoneum
  24. OXALIPLATIN [Suspect]
     Active Substance: OXALIPLATIN
     Indication: Metastases to rectum
  25. APATINIB [Suspect]
     Active Substance: APATINIB
     Indication: Metastases to rectum
     Route: 048
     Dates: start: 20210321, end: 20210615
  26. APATINIB [Suspect]
     Active Substance: APATINIB
     Indication: Metastases to bone
  27. APATINIB [Suspect]
     Active Substance: APATINIB
     Indication: Metastases to bladder
  28. APATINIB [Suspect]
     Active Substance: APATINIB
     Indication: Gastric cancer stage IV
  29. APATINIB [Suspect]
     Active Substance: APATINIB
     Indication: Metastases to peritoneum
  30. APATINIB [Suspect]
     Active Substance: APATINIB
     Indication: Metastases to spine
  31. SODIUM CHLORIDE [Concomitant]
     Active Substance: SODIUM CHLORIDE
     Indication: Metastases to rectum
     Dosage: 20 MG/ M2 ON DAYS 1 AND 8, Q4WKS, PTX WAS DILUTED IN 1000 ML SALINE AND MINISTERED INTRAPERITONEALLY
     Route: 033
     Dates: start: 20210329, end: 20210615
  32. SODIUM CHLORIDE [Concomitant]
     Active Substance: SODIUM CHLORIDE
     Indication: Gastric cancer stage IV
  33. SODIUM CHLORIDE [Concomitant]
     Active Substance: SODIUM CHLORIDE
     Indication: Metastases to peritoneum
  34. SODIUM CHLORIDE [Concomitant]
     Active Substance: SODIUM CHLORIDE
     Indication: Metastases to bladder
  35. SODIUM CHLORIDE [Concomitant]
     Active Substance: SODIUM CHLORIDE
     Indication: Metastases to bone
  36. SODIUM CHLORIDE [Concomitant]
     Active Substance: SODIUM CHLORIDE
     Indication: Metastases to spine

REACTIONS (4)
  - Bacterial infection [Unknown]
  - Fungal infection [Unknown]
  - Gastrointestinal haemorrhage [Unknown]
  - Myelosuppression [Unknown]

NARRATIVE: CASE EVENT DATE: 20210601
